FAERS Safety Report 6867690-5 (Version None)
Quarter: 2010Q3

REPORT INFORMATION
  Report Type: 
  Country: None (occurrence: None)
  Receive Date: 20100722
  Receipt Date: 20100421
  Transmission Date: 20110219
  Serious: No
  Sender: FDA-Public Use
  Company Number: US-BAUSCH-2010BL002295

PATIENT
  Age: 38 Year
  Sex: Female

DRUGS (4)
  1. OPCON-A [Suspect]
     Indication: EYE ALLERGY
     Route: 047
     Dates: start: 20100418, end: 20100419
  2. MULTI-VITAMINS [Concomitant]
  3. THYROXIN [Concomitant]
  4. NETIPOT [Concomitant]
     Indication: HYPERSENSITIVITY

REACTIONS (4)
  - DRY EYE [None]
  - EYE IRRITATION [None]
  - EYE PAIN [None]
  - EYE PRURITUS [None]
